FAERS Safety Report 9516830 (Version 2)
Quarter: 2013Q3

REPORT INFORMATION
  Report Type: Report from Study
  Country: US (occurrence: US)
  Receive Date: 20130911
  Receipt Date: 20130911
  Transmission Date: 20140515
  Serious: Yes (Other)
  Sender: FDA-Public Use
  Company Number: US-ABBOTT-13P-163-1132970-00

PATIENT
  Age: 20 Year
  Sex: Female

DRUGS (1)
  1. HUMIRA [Suspect]
     Indication: CROHN^S DISEASE
     Dates: start: 201306

REACTIONS (9)
  - Fistula [Recovering/Resolving]
  - Pain [Recovering/Resolving]
  - Fistula [Recovering/Resolving]
  - Pain [Recovering/Resolving]
  - Fungal infection [Recovering/Resolving]
  - Excoriation [Recovering/Resolving]
  - Pilonidal cyst [Not Recovered/Not Resolved]
  - Depression [Recovering/Resolving]
  - Treatment noncompliance [Unknown]
